FAERS Safety Report 13403895 (Version 2)
Quarter: 2017Q2

REPORT INFORMATION
  Report Type: Report from Study
  Country: CN (occurrence: CN)
  Receive Date: 20170405
  Receipt Date: 20170410
  Transmission Date: 20170830
  Serious: Yes (Hospitalization)
  Sender: FDA-Public Use
  Company Number: CN-ROCHE-1868163

PATIENT
  Sex: Male
  Weight: 79 kg

DRUGS (1)
  1. AVASTIN [Suspect]
     Active Substance: BEVACIZUMAB
     Indication: ADENOCARCINOMA OF COLON
     Route: 041
     Dates: start: 20160427

REACTIONS (5)
  - Haemorrhoidal haemorrhage [Unknown]
  - Pyrexia [Unknown]
  - Asthenia [Unknown]
  - Urinary tract infection [Unknown]
  - Mouth ulceration [Unknown]
